FAERS Safety Report 5741810-8 (Version None)
Quarter: 2008Q2

REPORT INFORMATION
  Report Type: 
  Country: None (occurrence: None)
  Receive Date: 20080519
  Receipt Date: 20080307
  Transmission Date: 20081010
  Serious: No
  Sender: FDA-Public Use
  Company Number: US-BAYER-200816963NA

PATIENT
  Age: 23 Year
  Sex: Female

DRUGS (2)
  1. MIRENA [Suspect]
     Indication: CONTRACEPTION
     Route: 015
     Dates: start: 20080306, end: 20080307
  2. MIRENA [Suspect]
     Route: 015
     Dates: start: 20080307

REACTIONS (2)
  - GENITAL PAIN [None]
  - IUCD COMPLICATION [None]
